FAERS Safety Report 16656113 (Version 2)
Quarter: 2019Q3

REPORT INFORMATION
  Report Type: Spontaneous
  Country: US (occurrence: US)
  Receive Date: 20190801
  Receipt Date: 20190823
  Transmission Date: 20191004
  Serious: Yes (Hospitalization, Other)
  Sender: FDA-Public Use
  Company Number: US-ASTRAZENECA-2019SF06929

PATIENT
  Sex: Male

DRUGS (3)
  1. OMEPRAZOLE. [Suspect]
     Active Substance: OMEPRAZOLE
     Indication: GASTROOESOPHAGEAL REFLUX DISEASE
     Dosage: UNKNOWN
     Route: 048
  2. BEVESPI AEROSPHERE [Suspect]
     Active Substance: FORMOTEROL FUMARATE\GLYCOPYRROLATE
     Indication: CHRONIC OBSTRUCTIVE PULMONARY DISEASE
     Dosage: 9/4.8 MCG, 2 PUFFS, BID
     Route: 055
  3. SYMBICORT [Suspect]
     Active Substance: BUDESONIDE\FORMOTEROL FUMARATE DIHYDRATE
     Indication: CHRONIC OBSTRUCTIVE PULMONARY DISEASE
     Dosage: 2 PUFFS TWO TIMES A DAY
     Route: 055

REACTIONS (17)
  - Device malfunction [Unknown]
  - Barrett^s oesophagus [Unknown]
  - Candida infection [Unknown]
  - Malaise [Unknown]
  - Wrong technique in product usage process [Unknown]
  - Gastrointestinal disorder [Unknown]
  - Insurance issue [Unknown]
  - Prostatic specific antigen increased [Unknown]
  - Insomnia [Unknown]
  - Prostatic disorder [Unknown]
  - Abdominal discomfort [Unknown]
  - Bone disorder [Unknown]
  - Bronchitis [Unknown]
  - Pneumonia [Unknown]
  - Feeding disorder [Unknown]
  - Weight decreased [Unknown]
  - Diverticulum [Unknown]
